FAERS Safety Report 9670094 (Version 3)
Quarter: 2014Q1

REPORT INFORMATION
  Report Type: Report from Study
  Country: US (occurrence: US)
  Receive Date: 20131105
  Receipt Date: 20140108
  Transmission Date: 20141002
  Serious: Yes (Hospitalization)
  Sender: FDA-Public Use
  Company Number: US-ACTELION-A-US2013-90569

PATIENT
  Age: 40 Year
  Sex: Female

DRUGS (2)
  1. VELETRI [Suspect]
     Indication: COR PULMONALE CHRONIC
     Dosage: 19 NG/KG, UNK
     Route: 042
     Dates: start: 20130613
  2. VELETRI [Suspect]
     Dosage: 2 UNK, UNK
     Route: 042
     Dates: start: 20130613

REACTIONS (8)
  - Infection [Unknown]
  - Menstrual disorder [Unknown]
  - Platelet count decreased [Unknown]
  - Gingival bleeding [Unknown]
  - Tooth socket haemorrhage [Unknown]
  - Dizziness [Unknown]
  - Pain in extremity [Unknown]
  - Rash [Recovered/Resolved]
